FAERS Safety Report 15037933 (Version 1)
Quarter: 2018Q2

REPORT INFORMATION
  Report Type: Spontaneous
  Country: DE (occurrence: DE)
  Receive Date: 20180620
  Receipt Date: 20180620
  Transmission Date: 20180711
  Serious: Yes (Hospitalization)
  Sender: FDA-Public Use
  Company Number: DE-TEVA-2018-DE-909506

PATIENT
  Age: 76 Year
  Sex: Male

DRUGS (5)
  1. ASS 100 [Concomitant]
     Active Substance: ASPIRIN
     Dosage: 100 MG, 0-1-0-0
     Route: 065
  2. XIPAMID [Suspect]
     Active Substance: XIPAMIDE
     Dosage: 0-1-0-0
     Route: 065
  3. NITRENDIPIN [Suspect]
     Active Substance: NITRENDIPINE
     Dosage: 20 MG, 1-0-0-1
     Route: 065
  4. TROMCARDIN COMPLEX [Concomitant]
     Dosage: 1-0-0-0
     Route: 065
  5. RAMIPRIL COMP [Suspect]
     Active Substance: HYDROCHLOROTHIAZIDE\RAMIPRIL
     Dosage: 5|2.5 MG, 1-0-0-0

REACTIONS (5)
  - Circulatory collapse [Unknown]
  - Angina pectoris [Unknown]
  - Hypotension [Unknown]
  - General physical health deterioration [Unknown]
  - Nausea [Unknown]
